FAERS Safety Report 21620419 (Version 2)
Quarter: 2022Q4

REPORT INFORMATION
  Report Type: Spontaneous
  Country: FR (occurrence: FR)
  Receive Date: 20221121
  Receipt Date: 20221216
  Transmission Date: 20230113
  Serious: Yes (Death)
  Sender: FDA-Public Use
  Company Number: FR-JNJFOC-20221016374

PATIENT
  Age: 8 Decade

DRUGS (1)
  1. TECLISTAMAB [Suspect]
     Active Substance: TECLISTAMAB
     Indication: Plasma cell myeloma refractory
     Dosage: DATE OF LAST DOSE 15-SEP-2022? 90 MG/ML VIALS
     Route: 065
     Dates: end: 20220915

REACTIONS (1)
  - Death [Fatal]
